FAERS Safety Report 8211002-1 (Version None)
Quarter: 2012Q1

REPORT INFORMATION
  Report Type: 
  Country: None (occurrence: None)
  Receive Date: 20120315
  Receipt Date: 20120306
  Transmission Date: 20120608
  Serious: Yes (Other)
  Sender: FDA-Public Use
  Company Number: PHFR2012GB001601

PATIENT
  Sex: Female

DRUGS (2)
  1. LOSARTAN POTASSIUM [Concomitant]
     Indication: BLOOD PRESSURE
  2. EXFORGE [Suspect]
     Dosage: 10MG AMLO AND 160 MG VALS

REACTIONS (7)
  - BLOOD PRESSURE DECREASED [None]
  - RASH [None]
  - OVERWEIGHT [None]
  - SLUGGISHNESS [None]
  - LIVER FUNCTION TEST ABNORMAL [None]
  - HAEMATOCHEZIA [None]
  - BACK PAIN [None]
